FAERS Safety Report 26192196 (Version 2)
Quarter: 2025Q4

REPORT INFORMATION
  Report Type: Report from Study
  Country: US (occurrence: US)
  Receive Date: 20251223
  Receipt Date: 20251224
  Transmission Date: 20260118
  Serious: No
  Sender: NOVARTIS
  Company Number: US-002147023-NVSC2025US195621

PATIENT
  Sex: Female

DRUGS (2)
  1. COSENTYX [Suspect]
     Active Substance: SECUKINUMAB
     Indication: Product used for unknown indication
     Dosage: 300 MG EVERY 28 DAYS
     Route: 050
  2. COSENTYX [Suspect]
     Active Substance: SECUKINUMAB
     Dosage: 300 MG
     Route: 062

REACTIONS (6)
  - Injection site pain [Unknown]
  - Drug dose omission by device [Unknown]
  - Device defective [Unknown]
  - Product administration error [Unknown]
  - Device leakage [Unknown]
  - Product use issue [Unknown]
